FAERS Safety Report 6653471-4 (Version None)
Quarter: 2010Q1

REPORT INFORMATION
  Report Type: 
  Country: None (occurrence: None)
  Receive Date: 20100326
  Receipt Date: 20100318
  Transmission Date: 20100710
  Serious: Yes (Hospitalization)
  Sender: FDA-Public Use
  Company Number: US-JNJFOC-20100306231

PATIENT
  Sex: Female
  Weight: 56.7 kg

DRUGS (2)
  1. FENTANYL CITRATE [Suspect]
     Indication: THORACIC OUTLET SYNDROME
     Route: 062
  2. FENTANYL-100 [Suspect]
     Indication: THORACIC OUTLET SYNDROME
     Route: 062

REACTIONS (9)
  - ADVERSE EVENT [None]
  - ANXIETY [None]
  - FATIGUE [None]
  - INFLUENZA LIKE ILLNESS [None]
  - INSOMNIA [None]
  - LACRIMATION INCREASED [None]
  - NAUSEA [None]
  - PAIN IN EXTREMITY [None]
  - PRODUCT QUALITY ISSUE [None]
